FAERS Safety Report 5703813-9 (Version None)
Quarter: 2008Q2

REPORT INFORMATION
  Report Type: 
  Country: None (occurrence: None)
  Receive Date: 20080414
  Receipt Date: 20080313
  Transmission Date: 20081010
  Serious: No
  Sender: FDA-Public Use
  Company Number: US-BAYER-200817602NA

PATIENT
  Sex: Female

DRUGS (2)
  1. AVELOX [Suspect]
     Indication: CELLULITIS
     Route: 048
     Dates: start: 20071218
  2. GEMFIBROZIL [Suspect]

REACTIONS (6)
  - ERYTHEMA [None]
  - MUSCLE SWELLING [None]
  - MUSCULOSKELETAL STIFFNESS [None]
  - MYALGIA [None]
  - RASH [None]
  - URTICARIA [None]
